FAERS Safety Report 5452856-1 (Version None)
Quarter: 2007Q3

REPORT INFORMATION
  Report Type: 
  Country: None (occurrence: None)
  Receive Date: 20070914
  Receipt Date: 20070908
  Transmission Date: 20080115
  Serious: Yes (Other)
  Sender: FDA-Public Use
  Company Number: US-ELI_LILLY_AND_COMPANY-US200709001540

PATIENT
  Age: 57 Year
  Sex: Female
  Weight: 66.666 kg

DRUGS (8)
  1. BYETTA [Suspect]
     Indication: TYPE 2 DIABETES MELLITUS
     Dosage: 5 UG, 2/D
     Route: 058
     Dates: start: 20061001
  2. PLAVIX [Concomitant]
     Indication: STENT PLACEMENT
     Dosage: UNK, UNKNOWN
     Route: 065
     Dates: start: 20061101
  3. ASPIRIN [Concomitant]
     Indication: CARDIAC DISORDER
     Dosage: 81 MG, DAILY (1/D)
     Route: 048
     Dates: start: 20050101
  4. TOPROL-XL [Concomitant]
     Indication: HYPERTENSION
     Dosage: UNK, UNKNOWN
     Route: 065
     Dates: start: 19930101
  5. ISOSORBIDE MONONITRATE [Concomitant]
     Indication: CHEST PAIN
     Dosage: UNK, UNKNOWN
     Route: 065
     Dates: start: 20050101, end: 20061101
  6. ISOSORBIDE MONONITRATE [Concomitant]
     Dosage: UNK, UNKNOWN
     Route: 065
     Dates: start: 20061101
  7. RANEXA [Concomitant]
     Indication: CHEST PAIN
     Dosage: UNK, UNKNOWN
     Route: 065
     Dates: start: 20061101
  8. NITROGLYCERIN [Concomitant]
     Indication: CHEST PAIN
     Dosage: UNK, UNKNOWN
     Route: 061
     Dates: start: 20050101

REACTIONS (4)
  - CORONARY ARTERY OCCLUSION [None]
  - INJECTION SITE BRUISING [None]
  - INJECTION SITE NODULE [None]
  - WEIGHT DECREASED [None]
